FAERS Safety Report 10679233 (Version 1)
Quarter: 2014Q4

REPORT INFORMATION
  Report Type: Spontaneous
  Country: US (occurrence: US)
  Receive Date: 20141229
  Receipt Date: 20141229
  Transmission Date: 20150529
  Serious: Yes (Hospitalization, Other)
  Sender: FDA-Public Use
  Company Number: US-BAYER-2014-187923

PATIENT
  Age: 14 Year
  Sex: Male

DRUGS (9)
  1. FLONASE [Concomitant]
     Active Substance: FLUTICASONE PROPIONATE
     Indication: HYPERSENSITIVITY
     Dosage: UPTO 2 SPRAY EACH NOSTRIL UPTO 2 TIMES DAILY
  2. ZYRTEC [Concomitant]
     Active Substance: CETIRIZINE HYDROCHLORIDE
     Indication: HYPERSENSITIVITY
     Dosage: 10 MG, QD
  3. MERCAPTOPURINE. [Concomitant]
     Active Substance: MERCAPTOPURINE
     Indication: CROHN^S DISEASE
  4. TYLENOL COLD [PARACETAMOL] [Concomitant]
     Indication: PAIN
     Dosage: 750 MG AS REQUIRED
  5. CIPRO [Suspect]
     Active Substance: CIPROFLOXACIN HYDROCHLORIDE
     Indication: GASTROENTERITIS SALMONELLA
     Dosage: 500 MG, BID
     Dates: start: 20140920
  6. HUMIRA [Concomitant]
     Active Substance: ADALIMUMAB
     Indication: CROHN^S DISEASE
     Dosage: 40 MG, Q2WK
     Route: 065
     Dates: start: 201107
  7. ZOFRAN [Concomitant]
     Active Substance: ONDANSETRON HYDROCHLORIDE
     Indication: NAUSEA
     Dosage: UNK UNK, PRN
  8. TYLENOL COLD [PARACETAMOL] [Concomitant]
     Indication: DISCOMFORT
  9. TYLENOL COLD [PARACETAMOL] [Concomitant]
     Indication: PYREXIA

REACTIONS (4)
  - Dehydration [Recovered/Resolved]
  - Lacrimation increased [Recovered/Resolved]
  - Drug ineffective [None]
  - Fatigue [Recovered/Resolved]

NARRATIVE: CASE EVENT DATE: 20140924
